FAERS Safety Report 4915426-7 (Version None)
Quarter: 2006Q1

REPORT INFORMATION
  Report Type: 
  Country: None (occurrence: None)
  Receive Date: 20060217
  Receipt Date: 20050920
  Transmission Date: 20060701
  Serious: Yes (Hospitalization)
  Sender: FDA-Public Use
  Company Number: US-MERCK-0509USA03228

PATIENT
  Age: 61 Year
  Sex: Male
  Weight: 116 kg

DRUGS (1)
  1. VIOXX [Suspect]
     Indication: GOUT
     Route: 048
     Dates: start: 20040801, end: 20041009

REACTIONS (12)
  - ATRIAL FLUTTER [None]
  - BRONCHITIS BACTERIAL [None]
  - DEMENTIA [None]
  - DIABETES MELLITUS [None]
  - FUNGAL INFECTION [None]
  - HIGH DENSITY LIPOPROTEIN DECREASED [None]
  - HYPERTENSION [None]
  - LOW DENSITY LIPOPROTEIN INCREASED [None]
  - MYOCARDIAL INFARCTION [None]
  - NEUROPATHY [None]
  - RASH [None]
  - RENAL DISORDER [None]
